FAERS Safety Report 7521948-5 (Version None)
Quarter: 2011Q2

REPORT INFORMATION
  Report Type: 
  Country: None (occurrence: None)
  Receive Date: 20110603
  Receipt Date: 20110523
  Transmission Date: 20111010
  Serious: Yes (Death)
  Sender: FDA-Public Use
  Company Number: US-CELGENEUS-163-21880-11050012

PATIENT
  Sex: Male

DRUGS (9)
  1. VELCADE [Concomitant]
     Dosage: 3.5 MILLIGRAM
     Route: 065
  2. DEXAMETHASONE [Concomitant]
     Dosage: 20 MILLIGRAM
     Route: 065
  3. FLUID [Concomitant]
     Indication: DEHYDRATION
     Route: 051
  4. ZOMETA [Concomitant]
     Dosage: 3 MILLIGRAM
     Route: 051
  5. REVLIMID [Suspect]
     Indication: MULTIPLE MYELOMA
     Dosage: 25 MILLIGRAM
     Route: 048
     Dates: start: 20100501
  6. VELCADE [Concomitant]
     Dosage: 1.3 MILLIGRAM/SQ. METER
     Route: 051
  7. MORPHINE [Concomitant]
     Route: 065
  8. VALTREX [Concomitant]
     Route: 065
  9. MARINOL [Concomitant]
     Route: 065

REACTIONS (1)
  - MULTIPLE MYELOMA [None]
